FAERS Safety Report 9713861 (Version 1)
Quarter: 2013Q4

REPORT INFORMATION
  Report Type: Spontaneous
  Country: US (occurrence: None)
  Receive Date: 20131126
  Receipt Date: 20131126
  Transmission Date: 20140711
  Serious: Yes (Other)
  Sender: FDA-Public Use
  Company Number: None

PATIENT
  Age: 11 Year
  Sex: Female
  Weight: 49.9 kg

DRUGS (1)
  1. ALBUTEROL SULFATE [Suspect]
     Indication: ASTHMA
     Dosage: 1 TREATMENT AS NEEDED INHALATION
     Route: 055
     Dates: start: 20131030, end: 20131104

REACTIONS (3)
  - Adverse drug reaction [None]
  - Product quality issue [None]
  - No reaction on previous exposure to drug [None]
